FAERS Safety Report 5844928-4 (Version None)
Quarter: 2008Q3

REPORT INFORMATION
  Report Type: 
  Country: None (occurrence: None)
  Receive Date: 20080813
  Receipt Date: 20080813
  Transmission Date: 20090109
  Serious: Yes (Hospitalization)
  Sender: FDA-Public Use
  Company Number: None

PATIENT
  Age: 74 Year
  Sex: Female
  Weight: 66.2 kg

DRUGS (5)
  1. BACTRIM [Suspect]
  2. FLUCONAZOLE [Suspect]
  3. WARFARIN SODIUM [Concomitant]
  4. DIOVAN [Concomitant]
  5. CARDIZEM CD [Concomitant]

REACTIONS (3)
  - DRUG TOXICITY [None]
  - INTERNATIONAL NORMALISED RATIO INCREASED [None]
  - RENAL FAILURE ACUTE [None]
